FAERS Safety Report 14260016 (Version 2)
Quarter: 2018Q2

REPORT INFORMATION
  Report Type: Spontaneous
  Country: US (occurrence: US)
  Receive Date: 20171207
  Receipt Date: 20180508
  Transmission Date: 20180711
  Serious: No
  Sender: FDA-Public Use
  Company Number: US-VIFOR (INTERNATIONAL) INC.-VIT-2017-09875

PATIENT
  Sex: Male
  Weight: 90.8 kg

DRUGS (17)
  1. ZOLPIDEM TARTRATE. [Concomitant]
     Active Substance: ZOLPIDEM TARTRATE
  2. ALPRAZOLAM. [Concomitant]
     Active Substance: ALPRAZOLAM
  3. FUROSEMIDE. [Concomitant]
     Active Substance: FUROSEMIDE
  4. LISINOPRIL. [Concomitant]
     Active Substance: LISINOPRIL
  5. NITROSTAT [Concomitant]
     Active Substance: NITROGLYCERIN
  6. VELTASSA [Suspect]
     Active Substance: PATIROMER
     Indication: HYPERKALAEMIA
     Route: 048
     Dates: start: 20160914
  7. PRANDIN [Concomitant]
     Active Substance: REPAGLINIDE
  8. AMLODIPINE BESILATE [Concomitant]
     Active Substance: AMLODIPINE BESYLATE
  9. DOCUSATE CALCIUM. [Concomitant]
     Active Substance: DOCUSATE CALCIUM
  10. OMEGA 3 [Concomitant]
     Active Substance: OMEGA-3 FATTY ACIDS
  11. ACETYLSALICYLIC ACID [Concomitant]
     Active Substance: ASPIRIN
  12. CLOPIDOGREL BISULFATE. [Concomitant]
     Active Substance: CLOPIDOGREL BISULFATE
  13. CRESTOR [Concomitant]
     Active Substance: ROSUVASTATIN CALCIUM
  14. CARVEDILOL. [Concomitant]
     Active Substance: CARVEDILOL
  15. ISOSORBIDE MONONITRATE. [Concomitant]
     Active Substance: ISOSORBIDE MONONITRATE
  16. TRADJENTA [Concomitant]
     Active Substance: LINAGLIPTIN
  17. SENNA [Concomitant]
     Active Substance: SENNA LEAF\SENNOSIDES\SENNOSIDES A AND B

REACTIONS (3)
  - Arteriosclerosis [Not Recovered/Not Resolved]
  - Myocardial calcification [Not Recovered/Not Resolved]
  - Condition aggravated [Not Recovered/Not Resolved]

NARRATIVE: CASE EVENT DATE: 2016
